FAERS Safety Report 5024135-8 (Version None)
Quarter: 2006Q2

REPORT INFORMATION
  Report Type: 
  Country: None (occurrence: None)
  Receive Date: 20060607
  Receipt Date: 20060523
  Transmission Date: 20061013
  Serious: Yes (Hospitalization)
  Sender: FDA-Public Use
  Company Number: US200605005203

PATIENT
  Sex: Female

DRUGS (4)
  1. ZYPREXA [Suspect]
     Indication: BIPOLAR DISORDER
     Dosage: 40 MG, DAILY (1/D); 20 MG, DAILY (1/D), 30 MG, DAILY (1/D)
     Dates: start: 19950101
  2. DEPAKOTE [Concomitant]
  3. FOSAMAX [Concomitant]
  4. WELLBUTRIN [Concomitant]

REACTIONS (4)
  - FEELING ABNORMAL [None]
  - PRESCRIBED OVERDOSE [None]
  - PSYCHOTIC DISORDER [None]
  - STUBBORNNESS [None]
